FAERS Safety Report 17747043 (Version 2)
Quarter: 2020Q2

REPORT INFORMATION
  Report Type: Spontaneous
  Country: US (occurrence: US)
  Receive Date: 20200505
  Receipt Date: 20200619
  Transmission Date: 20200714
  Serious: Yes (Death, Hospitalization)
  Sender: FDA-Public Use
  Company Number: US-CATALYST PHARMACEUTICALS, INC-2020CAT00178

PATIENT
  Age: 67 Year
  Sex: Male
  Weight: 90.7 kg

DRUGS (3)
  1. FIRDAPSE [Suspect]
     Active Substance: AMIFAMPRIDINE
     Indication: MYASTHENIC SYNDROME
  2. FIRDAPSE [Suspect]
     Active Substance: AMIFAMPRIDINE
     Indication: AMYOTROPHIC LATERAL SCLEROSIS
  3. FIRDAPSE [Suspect]
     Active Substance: AMIFAMPRIDINE
     Indication: MYASTHENIA GRAVIS
     Dosage: 15 MG, 3X/DAY
     Route: 048
     Dates: start: 2020

REACTIONS (5)
  - Hospitalisation [Unknown]
  - Respiratory disorder [Recovering/Resolving]
  - Dyspnoea [Recovering/Resolving]
  - Myasthenia gravis [Recovering/Resolving]
  - Death [Fatal]

NARRATIVE: CASE EVENT DATE: 20200414
